FAERS Safety Report 11432655 (Version 4)
Quarter: 2016Q1

REPORT INFORMATION
  Report Type: Report from Study
  Country: US (occurrence: US)
  Receive Date: 20150828
  Receipt Date: 20160128
  Transmission Date: 20160525
  Serious: Yes (Other)
  Sender: FDA-Public Use
  Company Number: PHEH2015US009699

PATIENT
  Age: 70 Year
  Sex: Female
  Weight: 75.28 kg

DRUGS (12)
  1. CALCIUM [Concomitant]
     Active Substance: CALCIUM
     Indication: PRODUCT USED FOR UNKNOWN INDICATION
     Dosage: UNK UNK, QD
     Route: 048
  2. AFINITOR [Suspect]
     Active Substance: EVEROLIMUS
     Indication: BREAST CANCER
     Dosage: UNK
     Route: 048
     Dates: start: 20140701
  3. AFINITOR [Suspect]
     Active Substance: EVEROLIMUS
     Dosage: 5 MG, QD
     Route: 048
     Dates: start: 20150414, end: 20150805
  4. LASIX [Concomitant]
     Active Substance: FUROSEMIDE
     Indication: PRODUCT USED FOR UNKNOWN INDICATION
     Dosage: 40 MG, 1 CUSTOM SIG
     Route: 065
  5. TYLENOL [Concomitant]
     Active Substance: ACETAMINOPHEN
     Indication: PRODUCT USED FOR UNKNOWN INDICATION
     Route: 065
  6. ALEVE [Concomitant]
     Active Substance: NAPROXEN SODIUM
     Indication: PRODUCT USED FOR UNKNOWN INDICATION
     Dosage: UNK UNK, QD
     Route: 048
  7. ATIVAN [Concomitant]
     Active Substance: LORAZEPAM
     Indication: PRODUCT USED FOR UNKNOWN INDICATION
     Dosage: 1 MG, Q8H PRN
     Route: 048
     Dates: start: 20150708
  8. HYDROCORTISONE. [Concomitant]
     Active Substance: HYDROCORTISONE
     Indication: PRODUCT USED FOR UNKNOWN INDICATION
     Dosage: UNK UNK, PRN
     Route: 065
  9. BIOTIN [Concomitant]
     Active Substance: BIOTIN
     Indication: PRODUCT USED FOR UNKNOWN INDICATION
     Route: 065
  10. AROMASIN [Concomitant]
     Active Substance: EXEMESTANE
     Indication: BREAST CANCER
     Dosage: 25 MG, QD
     Route: 048
     Dates: start: 20140107, end: 20150722
  11. AFINITOR [Suspect]
     Active Substance: EVEROLIMUS
     Dosage: 7.5 MG, QD
     Route: 048
     Dates: start: 20150105, end: 20150414
  12. SYNTHROID [Concomitant]
     Active Substance: LEVOTHYROXINE SODIUM
     Indication: PRODUCT USED FOR UNKNOWN INDICATION
     Dosage: 75 MCG/ML, QD
     Route: 048

REACTIONS (15)
  - Breast enlargement [Unknown]
  - Pneumonitis [Recovered/Resolved]
  - Malaise [Unknown]
  - Lung infection [Recovering/Resolving]
  - Nipple exudate bloody [Unknown]
  - Dyspnoea [Unknown]
  - Peau d^orange [Unknown]
  - Pain [Unknown]
  - Fatigue [Recovered/Resolved]
  - Blood pressure increased [Unknown]
  - Malignant neoplasm progression [Unknown]
  - Cough [Recovered/Resolved]
  - Pyrexia [Recovered/Resolved]
  - Breast pain [Unknown]
  - Heart rate increased [Unknown]

NARRATIVE: CASE EVENT DATE: 20150414
